FAERS Safety Report 19087844 (Version 1)
Quarter: 2021Q2

REPORT INFORMATION
  Report Type: Spontaneous
  Country: GB (occurrence: US)
  Receive Date: 20210402
  Receipt Date: 20210402
  Transmission Date: 20210717
  Serious: Yes (Other)
  Sender: FDA-Public Use
  Company Number: GB-ABBVIE-21K-167-3839587-00

PATIENT
  Sex: Female

DRUGS (4)
  1. TESTOSTERONE. [Suspect]
     Active Substance: TESTOSTERONE
     Indication: PRODUCT USED FOR UNKNOWN INDICATION
     Route: 065
  2. OESTRODOSE [Suspect]
     Active Substance: ESTRADIOL
     Indication: PRODUCT USED FOR UNKNOWN INDICATION
     Route: 065
     Dates: start: 202101, end: 2021
  3. ESTROGEL [Suspect]
     Active Substance: ESTRADIOL
     Route: 065
     Dates: start: 2021
  4. ESTROGEL [Suspect]
     Active Substance: ESTRADIOL
     Indication: PRODUCT USED FOR UNKNOWN INDICATION
     Dosage: CONSISTENT DOSE OF 4 PUMPS PER DAY (2 IN THE MORNING AND 2 IN THE EVENING)
     Route: 065
     Dates: start: 202011, end: 202101

REACTIONS (17)
  - Hyperacusis [Recovering/Resolving]
  - Feeling abnormal [Recovering/Resolving]
  - Product label issue [Unknown]
  - Pruritus [Recovering/Resolving]
  - Parosmia [Recovering/Resolving]
  - Product prescribing issue [Unknown]
  - Photosensitivity reaction [Recovering/Resolving]
  - Depression suicidal [Recovering/Resolving]
  - Candida infection [Recovering/Resolving]
  - Malaise [Recovering/Resolving]
  - Headache [Recovering/Resolving]
  - Loss of libido [Recovering/Resolving]
  - Arthralgia [Recovering/Resolving]
  - Pollakiuria [Recovering/Resolving]
  - Fatigue [Recovering/Resolving]
  - Temperature intolerance [Recovering/Resolving]
  - Dry skin [Recovering/Resolving]

NARRATIVE: CASE EVENT DATE: 2021
